FAERS Safety Report 5470330-3 (Version None)
Quarter: 2007Q3

REPORT INFORMATION
  Report Type: 
  Country: None (occurrence: None)
  Receive Date: 20070925
  Receipt Date: 20070917
  Transmission Date: 20080115
  Serious: Yes (Death, Hospitalization)
  Sender: FDA-Public Use
  Company Number: 15953

PATIENT
  Age: 77 Year
  Sex: Male

DRUGS (1)
  1. CYTARABINE [Suspect]
     Indication: ACUTE MYELOID LEUKAEMIA
     Dosage: 20 MG/M2 PER_CYCLE IV
     Route: 042
     Dates: start: 20061122, end: 20061201

REACTIONS (8)
  - DISEASE PROGRESSION [None]
  - DISSEMINATED INTRAVASCULAR COAGULATION [None]
  - FEBRILE BONE MARROW APLASIA [None]
  - FEBRILE NEUTROPENIA [None]
  - HEPATIC CANDIDIASIS [None]
  - HEPATIC LESION [None]
  - LIVER ABSCESS [None]
  - SEPSIS [None]
